FAERS Safety Report 18479948 (Version 3)
Quarter: 2021Q1

REPORT INFORMATION
  Report Type: Spontaneous
  Country: US (occurrence: US)
  Receive Date: 20201109
  Receipt Date: 20210305
  Transmission Date: 20210419
  Serious: Yes (Hospitalization)
  Sender: FDA-Public Use
  Company Number: US-AMNEAL PHARMACEUTICALS-2020-AMRX-03402

PATIENT
  Age: 61 Year
  Sex: Male

DRUGS (1)
  1. RYTARY [Suspect]
     Active Substance: CARBIDOPA\LEVODOPA
     Indication: PARKINSON^S DISEASE
     Dosage: 3 CAPSULES, 3 /DAY
     Route: 048

REACTIONS (4)
  - Fall [Unknown]
  - Blood disorder [Unknown]
  - Limb crushing injury [Unknown]
  - Gait inability [Unknown]

NARRATIVE: CASE EVENT DATE: 20201010
